FAERS Safety Report 4630808-9 (Version None)
Quarter: 2005Q2

REPORT INFORMATION
  Report Type: 
  Country: None (occurrence: None)
  Receive Date: 20050406
  Receipt Date: 20050322
  Transmission Date: 20051028
  Serious: Yes (Other)
  Sender: FDA-Public Use
  Company Number: 8009285

PATIENT
  Age: 83 Year
  Sex: Female

DRUGS (2)
  1. KEPPRA [Suspect]
     Dosage: 2000 MG/D PO
     Route: 048
     Dates: start: 20050101, end: 20050101
  2. KEPPRA [Suspect]
     Dosage: 1000 MG/D PO
     Route: 048
     Dates: start: 20050101

REACTIONS (1)
  - NO ADVERSE EFFECT [None]
